FAERS Safety Report 11260172 (Version 2)
Quarter: 2015Q3

REPORT INFORMATION
  Report Type: Spontaneous
  Country: GB (occurrence: GB)
  Receive Date: 20150710
  Receipt Date: 20150812
  Transmission Date: 20151125
  Serious: Yes (Death, Hospitalization)
  Sender: FDA-Public Use
  Company Number: GB-AMGEN-GBRSP2015067471

PATIENT
  Age: 88 Year
  Sex: Male

DRUGS (1)
  1. ARANESP [Suspect]
     Active Substance: DARBEPOETIN ALFA
     Indication: PRODUCT USED FOR UNKNOWN INDICATION
     Dosage: 20/40 MCG, ALTERNATE WEEKS
     Route: 065

REACTIONS (2)
  - Death [Fatal]
  - Hospitalisation [Not Recovered/Not Resolved]
